FAERS Safety Report 6676706-0 (Version None)
Quarter: 2010Q2

REPORT INFORMATION
  Report Type: 
  Country: None (occurrence: None)
  Receive Date: 20100408
  Receipt Date: 20100329
  Transmission Date: 20101027
  Serious: Yes (Other)
  Sender: FDA-Public Use
  Company Number: 1022556-2010-00022

PATIENT
  Sex: Male
  Weight: 102.0593 kg

DRUGS (3)
  1. ICY HOT NO MESS APPLICATOR [Suspect]
     Indication: THERAPEUTIC SKIN CARE TOPICAL
     Dosage: 2X, TOPICAL
     Route: 061
     Dates: start: 20100128, end: 20100201
  2. DIABETIC MEDICATIONS [Concomitant]
  3. HEART MEDICATIONS [Concomitant]

REACTIONS (5)
  - ERYTHEMA [None]
  - HAEMORRHAGE [None]
  - PAIN [None]
  - SCAB [None]
  - THERMAL BURN [None]
